FAERS Safety Report 19611995 (Version 4)
Quarter: 2021Q4

REPORT INFORMATION
  Report Type: Report from Study
  Country: US (occurrence: US)
  Receive Date: 20210726
  Receipt Date: 20211006
  Transmission Date: 20220303
  Serious: Yes (Other)
  Sender: FDA-Public Use
  Company Number: US-BAYER-2021-176487

PATIENT

DRUGS (1)
  1. EYLEA [Suspect]
     Active Substance: AFLIBERCEPT
     Indication: Neovascular age-related macular degeneration
     Dosage: OD, UNKNOWN EYLEA TOTAL DOSE, LAST DOSE PRIOR THE EVENT ON 30-NOV-2020
     Route: 031
     Dates: start: 20150105, end: 20201130

REACTIONS (3)
  - Blindness [Recovering/Resolving]
  - Endophthalmitis [Recovered/Resolved]
  - Wrong technique in product usage process [Recovered/Resolved]

NARRATIVE: CASE EVENT DATE: 20201130
